FAERS Safety Report 12134473 (Version 3)
Quarter: 2016Q2

REPORT INFORMATION
  Report Type: Spontaneous
  Country: ES (occurrence: ES)
  Receive Date: 20160301
  Receipt Date: 20160630
  Transmission Date: 20160815
  Serious: Yes (Death, Other)
  Sender: FDA-Public Use
  Company Number: ES-JNJFOC-20160222978

PATIENT

DRUGS (3)
  1. SOFOSBUVIR [Suspect]
     Active Substance: SOFOSBUVIR
     Indication: HEPATIC CIRRHOSIS
     Route: 065
  2. SIMEPREVIR [Suspect]
     Active Substance: SIMEPREVIR
     Indication: HEPATIC CIRRHOSIS
     Route: 065
  3. RIBAVIRIN. [Suspect]
     Active Substance: RIBAVIRIN
     Indication: HEPATIC CIRRHOSIS
     Route: 065

REACTIONS (25)
  - Renal failure [Unknown]
  - Headache [Unknown]
  - Lymphoma [Fatal]
  - Aplasia [Unknown]
  - Vomiting [Unknown]
  - Hepatocellular carcinoma [Fatal]
  - Skin disorder [Unknown]
  - Influenza [Unknown]
  - Death [Fatal]
  - Hepatocellular injury [Fatal]
  - Hepatic failure [Fatal]
  - Hepatic function abnormal [Unknown]
  - Sepsis [Fatal]
  - Nausea [Unknown]
  - Pruritus [Unknown]
  - Product use issue [Unknown]
  - Rash [Unknown]
  - Drug effect incomplete [Unknown]
  - Off label use [Unknown]
  - Infection [Unknown]
  - Fatigue [Unknown]
  - Hyperbilirubinaemia [Unknown]
  - Anaemia [Unknown]
  - General physical health deterioration [Unknown]
  - Insomnia [Unknown]
